FAERS Safety Report 18550037 (Version 1)
Quarter: 2020Q4

REPORT INFORMATION
  Report Type: Spontaneous
  Country: IE (occurrence: IE)
  Receive Date: 20201126
  Receipt Date: 20201126
  Transmission Date: 20210114
  Serious: Yes (Death)
  Sender: FDA-Public Use
  Company Number: NVSC2020IE313094

PATIENT
  Sex: Male
  Weight: 1.87 kg

DRUGS (1)
  1. EXFORGE HCT [Suspect]
     Active Substance: AMLODIPINE BESYLATE\HYDROCHLOROTHIAZIDE\VALSARTAN
     Indication: FOETAL EXPOSURE DURING PREGNANCY
     Dosage: MOTHER WAS TAKING ONE TABLET DAILY THROUGHOUT HER PREGNANCY.
     Route: 064

REACTIONS (3)
  - Foetal exposure during pregnancy [Fatal]
  - Nephropathy [Fatal]
  - Critical illness [Fatal]

NARRATIVE: CASE EVENT DATE: 20200913
